FAERS Safety Report 7829932-9 (Version None)
Quarter: 2011Q4

REPORT INFORMATION
  Report Type: 
  Country: None (occurrence: None)
  Receive Date: 20111021
  Receipt Date: 20111003
  Transmission Date: 20120403
  Serious: Yes (Other)
  Sender: FDA-Public Use
  Company Number: US-BAYER-2011-014125

PATIENT
  Age: 46 Year
  Sex: Female
  Weight: 86.168 kg

DRUGS (3)
  1. YAZ [Suspect]
     Indication: PREMENSTRUAL SYNDROME
  2. TYLENOL (CAPLET) [Concomitant]
  3. YAZ [Suspect]
     Indication: ACNE
     Dosage: UNK
     Route: 048
     Dates: start: 20080101, end: 20090901

REACTIONS (9)
  - CHOLELITHIASIS [None]
  - VOMITING [None]
  - POST CHOLECYSTECTOMY SYNDROME [None]
  - INJURY [None]
  - ANXIETY [None]
  - CHOLECYSTITIS CHRONIC [None]
  - PAIN [None]
  - GALLBLADDER PAIN [None]
  - ABDOMINAL PAIN [None]
